FAERS Safety Report 22007357 (Version 1)
Quarter: 2023Q1

REPORT INFORMATION
  Report Type: Report from Study
  Country: DE (occurrence: DE)
  Receive Date: 20230218
  Receipt Date: 20230218
  Transmission Date: 20230417
  Serious: Yes (Hospitalization, Other)
  Sender: FDA-Public Use
  Company Number: DE-ABBVIE-22K-062-4343376-00

PATIENT
  Age: 26 Year
  Sex: Female

DRUGS (2)
  1. HUMIRA [Suspect]
     Active Substance: ADALIMUMAB
     Indication: Rheumatoid arthritis
     Route: 058
     Dates: start: 20160920
  2. HUMIRA [Suspect]
     Active Substance: ADALIMUMAB
     Route: 058

REACTIONS (14)
  - Poisoning [Recovered/Resolved]
  - Maternal exposure during pregnancy [Unknown]
  - Rheumatoid arthritis [Not Recovered/Not Resolved]
  - Rheumatic disorder [Recovering/Resolving]
  - Morning sickness [Not Recovered/Not Resolved]
  - Hormone level abnormal [Unknown]
  - COVID-19 [Recovered/Resolved]
  - Caesarean section [Recovered/Resolved]
  - Live birth [Unknown]
  - Laboratory test abnormal [Recovered/Resolved]
  - COVID-19 [Unknown]
  - Postoperative wound complication [Recovered/Resolved]
  - Inflammation of wound [Recovered/Resolved]
  - Wound secretion [Recovered/Resolved]

NARRATIVE: CASE EVENT DATE: 20220201
